FAERS Safety Report 11394859 (Version 1)
Quarter: 2015Q3

REPORT INFORMATION
  Report Type: Spontaneous
  Country: US (occurrence: None)
  Receive Date: 20150817
  Receipt Date: 20150817
  Transmission Date: 20151125
  Serious: Yes (Other)
  Sender: FDA-Public Use
  Company Number: ADR-2015-01547

PATIENT
  Age: 50 Year
  Sex: Female

DRUGS (1)
  1. LIORESAL [Suspect]
     Active Substance: BACLOFEN
     Indication: MUSCLE SPASTICITY
     Dosage: 99.9 MCG/DAY?SEE B5

REACTIONS (9)
  - Limb discomfort [None]
  - Paraesthesia [None]
  - Condition aggravated [None]
  - Overdose [None]
  - Muscle spasticity [None]
  - Nerve compression [None]
  - Gait disturbance [None]
  - Pain [None]
  - Sedation [None]
